FAERS Safety Report 7993950-0 (Version None)
Quarter: 2011Q4

REPORT INFORMATION
  Report Type: 
  Country: None (occurrence: None)
  Receive Date: 20111215
  Receipt Date: 20111202
  Transmission Date: 20120403
  Serious: Yes (Death, Life-Threatening)
  Sender: FDA-Public Use
  Company Number: 1000025399

PATIENT
  Age: 81 Year
  Sex: Male

DRUGS (9)
  1. HALOPERIDOL [Concomitant]
  2. RAMIPRIL [Concomitant]
  3. OMEPRAZOLE [Concomitant]
  4. ROFLUMILAST (ROFLUMILAST) (TABLETS) [Suspect]
     Indication: RESPIRATORY FAILURE
     Dosage: 500 MCG (500 MCG, 1 IN 1 D), ORAL
     Route: 048
     Dates: start: 20110726, end: 20110810
  5. ROFLUMILAST (ROFLUMILAST) (TABLETS) [Suspect]
     Indication: CHRONIC OBSTRUCTIVE PULMONARY DISEASE
     Dosage: 500 MCG (500 MCG, 1 IN 1 D), ORAL
     Route: 048
     Dates: start: 20110726, end: 20110810
  6. FUROSEMIDE [Concomitant]
  7. VENTOLAIR (BECLOMETASONE DIPROPIONATE) [Concomitant]
  8. FORADIL [Concomitant]
  9. SPIRIVA [Concomitant]

REACTIONS (4)
  - COMPLETED SUICIDE [None]
  - RESPIRATORY FAILURE [None]
  - DEPRESSION [None]
  - CONDITION AGGRAVATED [None]
